FAERS Safety Report 20424069 (Version 1)
Quarter: 2022Q1

REPORT INFORMATION
  Report Type: Report from Study
  Country: CA (occurrence: CA)
  Receive Date: 20220203
  Receipt Date: 20220203
  Transmission Date: 20220424
  Serious: Yes (Other)
  Sender: FDA-Public Use
  Company Number: CA-EXELIXIS-CABO-21039640

PATIENT
  Sex: Male

DRUGS (12)
  1. CABOMETYX [Suspect]
     Active Substance: CABOZANTINIB S-MALATE
     Indication: Renal cell carcinoma
     Dosage: 20 MG, QD
     Route: 048
     Dates: start: 20201104, end: 202104
  2. CABOMETYX [Suspect]
     Active Substance: CABOZANTINIB S-MALATE
     Dosage: 20 MG, QD
     Route: 048
     Dates: start: 202105
  3. SYNTHROID [Concomitant]
     Active Substance: LEVOTHYROXINE SODIUM
  4. APIXABAN [Concomitant]
     Active Substance: APIXABAN
  5. LEVETIRACETAM [Concomitant]
     Active Substance: LEVETIRACETAM
  6. PANTOPRAZOLE SODIUM [Concomitant]
     Active Substance: PANTOPRAZOLE SODIUM
  7. METOCLOPRAMIDE [Concomitant]
     Active Substance: METOCLOPRAMIDE
  8. HYDROMORPHONE [Concomitant]
     Active Substance: HYDROMORPHONE
  9. VITAMIN C [Concomitant]
     Active Substance: ASCORBIC ACID
  10. DEXAMETHASONE [Concomitant]
     Active Substance: DEXAMETHASONE
  11. VITAMIN B12 [Concomitant]
     Active Substance: CYANOCOBALAMIN
  12. CANNABIS SATIVA SUBSP. INDICA TOP [Concomitant]
     Active Substance: CANNABIS SATIVA SUBSP. INDICA TOP

REACTIONS (1)
  - Malignant neoplasm progression [Unknown]
